FAERS Safety Report 20643701 (Version 1)
Quarter: 2022Q1

REPORT INFORMATION
  Report Type: Spontaneous
  Country: US (occurrence: None)
  Receive Date: 20220326
  Receipt Date: 20220326
  Transmission Date: 20220423
  Serious: No
  Sender: FDA-Public Use
  Company Number: None

PATIENT
  Age: 46 Year
  Sex: Female
  Weight: 126.45 kg

DRUGS (4)
  1. WEGOVY [Suspect]
     Active Substance: SEMAGLUTIDE
     Indication: Weight decreased
     Dosage: OTHER QUANTITY : 0.25 INJECTION(S)?OTHER FREQUENCY : ONCE A WEEK?
     Route: 058
     Dates: start: 20220310, end: 20220324
  2. METFORMIN [Concomitant]
     Active Substance: METFORMIN HYDROCHLORIDE
  3. Hydrocholorathizde [Concomitant]
  4. Tylenol as needed [Concomitant]

REACTIONS (6)
  - Arthralgia [None]
  - Arthralgia [None]
  - Dysstasia [None]
  - Chills [None]
  - Heart rate increased [None]
  - Musculoskeletal stiffness [None]

NARRATIVE: CASE EVENT DATE: 20220324
